FAERS Safety Report 5564059-0 (Version None)
Quarter: 2007Q4

REPORT INFORMATION
  Report Type: 
  Country: None (occurrence: None)
  Receive Date: 20071217
  Receipt Date: 20071120
  Transmission Date: 20080405
  Serious: No
  Sender: FDA-Public Use
  Company Number: US-BOEHRINGER INGELHEIM PHARMACEUTICALS, INC.-2007-BP-22389BP

PATIENT
  Age: 60 Year
  Sex: Male

DRUGS (4)
  1. FLOMAX [Suspect]
     Indication: BENIGN PROSTATIC HYPERPLASIA
     Route: 048
     Dates: start: 20061001
  2. NORVASC [Concomitant]
     Indication: HYPERTENSION
  3. LORAZEPAM [Concomitant]
  4. NEXIUM [Concomitant]

REACTIONS (2)
  - GROIN PAIN [None]
  - PENILE PAIN [None]
